FAERS Safety Report 13996837 (Version 1)
Quarter: 2017Q3

REPORT INFORMATION
  Report Type: Other
  Country: US (occurrence: US)
  Receive Date: 20170921
  Receipt Date: 20170921
  Transmission Date: 20171128
  Serious: Yes (Other)
  Sender: FDA-Public Use
  Company Number: US-FRESENIUS MEDICAL CARE RENAL THERAPIES GROUP-FMC-1708-000862

PATIENT
  Age: 58 Year
  Sex: Male

DRUGS (3)
  1. VITAMIN D [Concomitant]
     Active Substance: CHOLECALCIFEROL
     Dosage: 50,000 UNITS EVERY 30 DAYS
  2. PHOSLO [Suspect]
     Active Substance: CALCIUM ACETATE
     Indication: HYPERPHOSPHATAEMIA
     Dates: start: 2007
  3. CINACALCET [Concomitant]
     Active Substance: CINACALCET
     Dosage: 60 MG TWICE PER DAY

REACTIONS (1)
  - Hypercalcaemia [Recovered/Resolved]
